FAERS Safety Report 19840120 (Version 1)
Quarter: 2021Q3

REPORT INFORMATION
  Report Type: Spontaneous
  Country: GB (occurrence: GB)
  Receive Date: 20210916
  Receipt Date: 20210916
  Transmission Date: 20211014
  Serious: Yes (Other)
  Sender: FDA-Public Use
  Company Number: GB-TEVA-2021-GB-1951829

PATIENT
  Age: 21 Year
  Sex: Female
  Weight: 60 kg

DRUGS (4)
  1. QUETIAPINE. [Suspect]
     Active Substance: QUETIAPINE
     Indication: ILL-DEFINED DISORDER
     Dosage: 50MG
     Route: 048
     Dates: start: 20210904, end: 20210905
  2. QUETIAPINE. [Suspect]
     Active Substance: QUETIAPINE
     Indication: BORDERLINE PERSONALITY DISORDER
  3. D?MANNOSE [Concomitant]
     Indication: ILL-DEFINED DISORDER
  4. AMITRIPTYLIN [Concomitant]
     Active Substance: AMITRIPTYLINE
     Indication: ILL-DEFINED DISORDER

REACTIONS (7)
  - Arthralgia [Not Recovered/Not Resolved]
  - Palpitations [Recovering/Resolving]
  - Hypoaesthesia [Recovered/Resolved]
  - Limb discomfort [Not Recovered/Not Resolved]
  - Nausea [Recovered/Resolved with Sequelae]
  - Extrasystoles [Recovering/Resolving]
  - Mental impairment [Not Recovered/Not Resolved]

NARRATIVE: CASE EVENT DATE: 20210904
